FAERS Safety Report 6155840-8 (Version None)
Quarter: 2009Q2

REPORT INFORMATION
  Report Type: 
  Country: None (occurrence: None)
  Receive Date: 20090415
  Receipt Date: 20090407
  Transmission Date: 20091009
  Serious: Yes (Disabling)
  Sender: FDA-Public Use
  Company Number: GB-AMGEN-US342521

PATIENT
  Age: 66 Year
  Sex: Female
  Weight: 57 kg

DRUGS (5)
  1. ENBREL [Suspect]
     Indication: RHEUMATOID ARTHRITIS
     Dosage: 50 MG (FREQUENCY UNSPECIFIED)
     Route: 030
     Dates: start: 20081015, end: 20090225
  2. METHOTREXATE [Concomitant]
     Indication: RHEUMATOID ARTHRITIS
     Dosage: 25 MG (FREQUENCY UNSPECIFIED)
     Route: 048
     Dates: start: 20080109, end: 20081217
  3. GLUCOSAMINE [Concomitant]
     Indication: RHEUMATOID ARTHRITIS
     Dosage: 500 MG 3 /1 DAY
     Route: 048
     Dates: start: 20080123, end: 20090109
  4. ACETAMINOPHEN W/ CODEINE [Concomitant]
     Indication: RHEUMATOID ARTHRITIS
     Dosage: 2DF 4 /1DAYS
     Route: 048
     Dates: start: 20070117
  5. FOLIC ACID [Concomitant]
     Indication: RHEUMATOID ARTHRITIS
     Dosage: 5 MG (FREQUENCY UNSPECIFIED)
     Route: 048
     Dates: start: 20071214, end: 20081118

REACTIONS (5)
  - DIARRHOEA [None]
  - DIZZINESS [None]
  - FATIGUE [None]
  - MALAISE [None]
  - PYREXIA [None]
